FAERS Safety Report 8138128-5 (Version None)
Quarter: 2012Q1

REPORT INFORMATION
  Report Type: 
  Country: None (occurrence: None)
  Receive Date: 20120215
  Receipt Date: 20120215
  Transmission Date: 20120608
  Serious: Yes (Other)
  Sender: FDA-Public Use
  Company Number: None

PATIENT
  Age: 44 Year
  Sex: Female
  Weight: 74.842 kg

DRUGS (2)
  1. DEPAKOTE [Suspect]
     Indication: ANXIETY
     Dosage: 100.0 MG
     Route: 048
     Dates: start: 20111215, end: 20111216
  2. DEPAKOTE [Suspect]
     Indication: DEPRESSION
     Dosage: 100.0 MG
     Route: 048
     Dates: start: 20111215, end: 20111216

REACTIONS (2)
  - ANXIETY [None]
  - BLOOD PRESSURE INCREASED [None]
